FAERS Safety Report 15274818 (Version 2)
Quarter: 2018Q3

REPORT INFORMATION
  Report Type: Spontaneous
  Country: US (occurrence: US)
  Receive Date: 20180814
  Receipt Date: 20180903
  Transmission Date: 20181010
  Serious: Yes (Death)
  Sender: FDA-Public Use
  Company Number: US-ROCHE-2167811

PATIENT
  Age: 31 Year
  Sex: Male

DRUGS (2)
  1. AVASTIN [Suspect]
     Active Substance: BEVACIZUMAB
     Indication: BRAIN NEOPLASM MALIGNANT
     Dosage: STRENGTH : 25 MG/ML, INJECTION
     Route: 042
     Dates: start: 20171228, end: 20180426
  2. AVASTIN [Suspect]
     Active Substance: BEVACIZUMAB
     Dosage: STRENGTH : 25 MG/ML, INJECTION, 01/AUG/2017
     Route: 042
     Dates: start: 201805

REACTIONS (1)
  - Glioblastoma multiforme [Fatal]

NARRATIVE: CASE EVENT DATE: 201807
